FAERS Safety Report 10213468 (Version 1)
Quarter: 2014Q2

REPORT INFORMATION
  Report Type: Spontaneous
  Country: US (occurrence: US)
  Receive Date: 20140603
  Receipt Date: 20140603
  Transmission Date: 20141212
  Serious: Yes (Death, Other)
  Sender: FDA-Public Use
  Company Number: US-SHIRE-US201402527

PATIENT
  Age: 3 Month
  Sex: Female

DRUGS (1)
  1. VYVANSE [Suspect]
     Indication: PRODUCT USED FOR UNKNOWN INDICATION
     Dosage: UNK, UNKNOWN
     Route: 065

REACTIONS (8)
  - Asphyxia [Fatal]
  - Respiratory arrest [Unknown]
  - Subdural haemorrhage [Unknown]
  - Accidental exposure to product [Unknown]
  - Skin abrasion [Unknown]
  - Contusion [Unknown]
  - Gingival bleeding [Unknown]
  - Haemorrhage [Unknown]
